FAERS Safety Report 8060614-7 (Version None)
Quarter: 2012Q1

REPORT INFORMATION
  Report Type: 
  Country: None (occurrence: None)
  Receive Date: 20120119
  Receipt Date: 20120119
  Transmission Date: 20120608
  Serious: No
  Sender: FDA-Public Use
  Company Number: None

PATIENT
  Age: 88 Year
  Sex: Female
  Weight: 54.4316 kg

DRUGS (1)
  1. CLONAZEPAM [Suspect]
     Dosage: 1 PO BID
     Route: 048
     Dates: start: 20080101

REACTIONS (2)
  - TACHYCARDIA [None]
  - PRODUCT SUBSTITUTION ISSUE [None]
